FAERS Safety Report 17933881 (Version 1)
Quarter: 2020Q2

REPORT INFORMATION
  Report Type: Spontaneous
  Country: DE (occurrence: DE)
  Receive Date: 20200623
  Receipt Date: 20200623
  Transmission Date: 20200714
  Serious: Yes (Hospitalization)
  Sender: FDA-Public Use
  Company Number: DE-ANIPHARMA-2020-DE-000132

PATIENT
  Age: 62 Year
  Sex: Male

DRUGS (6)
  1. ACETYLSALICYLIC ACID [Concomitant]
     Active Substance: ASPIRIN
     Dosage: 100 MG QD
     Route: 048
  2. SIMVASTATIN. [Concomitant]
     Active Substance: SIMVASTATIN
     Dosage: 20 MG QD
     Route: 048
  3. TORASEMIDE [Suspect]
     Active Substance: TORSEMIDE
     Dosage: 10 MG QD
     Route: 048
  4. METOPROLOL. [Concomitant]
     Active Substance: METOPROLOL
     Dosage: 95 MG Q12H
     Route: 048
  5. ALLOPURINOL. [Concomitant]
     Active Substance: ALLOPURINOL
     Dosage: 300 MG QD
     Route: 048
  6. CANDESARTAN CILEXETIL AND HYDROCHLOROTHIAZIDE [Suspect]
     Active Substance: CANDESARTAN CILEXETIL\HYDROCHLOROTHIAZIDE
     Indication: PRODUCT USED FOR UNKNOWN INDICATION
     Dosage: 32 MILLIGRAM/25 MILLIGRAM, EVERY DAY
     Route: 048

REACTIONS (3)
  - General physical health deterioration [Unknown]
  - Tremor [Unknown]
  - Electrolyte imbalance [Unknown]
